FAERS Safety Report 6838645-1 (Version None)
Quarter: 2010Q3

REPORT INFORMATION
  Report Type: 
  Country: None (occurrence: None)
  Receive Date: 20100713
  Receipt Date: 20070605
  Transmission Date: 20110219
  Serious: No
  Sender: FDA-Public Use
  Company Number: US-PFIZER INC-2007046540

PATIENT
  Sex: Male
  Weight: 72 kg

DRUGS (5)
  1. CHANTIX [Suspect]
     Indication: SMOKING CESSATION THERAPY
     Dates: start: 20070501, end: 20070604
  2. ALL OTHER THERAPEUTIC PRODUCTS [Concomitant]
  3. LIPITOR [Concomitant]
  4. DOXAZOSIN [Concomitant]
  5. SOTALOL HCL [Concomitant]

REACTIONS (4)
  - ABDOMINAL DISTENSION [None]
  - DECREASED APPETITE [None]
  - FATIGUE [None]
  - INSOMNIA [None]
